FAERS Safety Report 6473525-5 (Version None)
Quarter: 2009Q4

REPORT INFORMATION
  Report Type: 
  Country: None (occurrence: None)
  Receive Date: 20091204
  Receipt Date: 20081204
  Transmission Date: 20100525
  Serious: Yes (Hospitalization, Other)
  Sender: FDA-Public Use
  Company Number: US-ELI_LILLY_AND_COMPANY-US200812001783

PATIENT
  Sex: Male
  Weight: 88.889 kg

DRUGS (9)
  1. BYETTA [Suspect]
     Indication: TYPE 2 DIABETES MELLITUS
     Dosage: 5 UG, 2/D
     Route: 058
     Dates: start: 20080509, end: 20080621
  2. METFORMIN HCL [Concomitant]
     Dosage: 1000 MG, 2/D
     Route: 048
  3. ATENOLOL [Concomitant]
     Dosage: 100 MG, EACH MORNING
  4. ALLEGRA D /01367401/ [Concomitant]
     Dosage: UNK, 2/D
     Route: 048
  5. GABAPENTIN [Concomitant]
     Dosage: 300 MG, EACH EVENING
     Route: 048
  6. SULFAMETHIZOLE TAB [Concomitant]
     Dosage: UNK, EACH MORNING
  7. COMBIVENT [Concomitant]
     Dosage: UNK, 2/D
     Route: 055
  8. SOMA [Concomitant]
     Indication: MUSCULOSKELETAL PAIN
     Dosage: 250 MG, EACH MORNING
     Dates: start: 20080101
  9. XALATAN [Concomitant]
     Dosage: UNK, EACH EVENING
     Route: 047

REACTIONS (6)
  - FUNGAL SKIN INFECTION [None]
  - GASTRIC ULCER [None]
  - HAEMORRHOIDS [None]
  - LIVER FUNCTION TEST ABNORMAL [None]
  - PANCREATITIS ACUTE [None]
  - POLYP COLORECTAL [None]
